FAERS Safety Report 8401145-1 (Version None)
Quarter: 2012Q2

REPORT INFORMATION
  Report Type: 
  Country: None (occurrence: None)
  Receive Date: 20120601
  Receipt Date: 20120530
  Transmission Date: 20120825
  Serious: Yes (Other)
  Sender: FDA-Public Use
  Company Number: US-BAYER-2012-053844

PATIENT
  Sex: Female

DRUGS (2)
  1. MIRENA [Suspect]
     Indication: MENORRHAGIA
     Dosage: 20 MCG/24HR, UNK
     Dates: start: 20111216, end: 20120502
  2. MIRENA [Suspect]
     Indication: ENDOMETRIOSIS

REACTIONS (1)
  - VAGINAL HAEMORRHAGE [None]
